FAERS Safety Report 5585641-0 (Version None)
Quarter: 2008Q1

REPORT INFORMATION
  Report Type: 
  Country: None (occurrence: None)
  Receive Date: 20080104
  Receipt Date: 20071219
  Transmission Date: 20080703
  Serious: Yes (Life-Threatening, Hospitalization, Disabling, Other)
  Sender: FDA-Public Use
  Company Number: DSA_61862_2007

PATIENT
  Age: 65 Year
  Sex: Female

DRUGS (1)
  1. DIHYDERGOT /00017802/ (DIHYDERGOT) (NOT SPECIFIED) [Suspect]
     Indication: MIGRAINE
     Dosage: (DF)
     Dates: end: 19950101

REACTIONS (14)
  - DIPLEGIA [None]
  - FALL [None]
  - LEG AMPUTATION [None]
  - LOSS OF CONSCIOUSNESS [None]
  - MUSCLE SPASMS [None]
  - OSTEOMYELITIS [None]
  - PERIPHERAL ISCHAEMIA [None]
  - PYREXIA [None]
  - RADIATION ASSOCIATED PAIN [None]
  - TALIPES [None]
  - THROMBOSIS [None]
  - UPPER LIMB FRACTURE [None]
  - WOUND INFECTION [None]
  - WOUND NECROSIS [None]
